FAERS Safety Report 19260210 (Version 2)
Quarter: 2021Q2

REPORT INFORMATION
  Report Type: Report from Study
  Country: CA (occurrence: CA)
  Receive Date: 20210514
  Receipt Date: 20210531
  Transmission Date: 20210717
  Serious: Yes (Hospitalization, Other)
  Sender: FDA-Public Use
  Company Number: NVSC2021CA102280

PATIENT
  Age: 50 Year
  Sex: Female
  Weight: 87 kg

DRUGS (22)
  1. ENSTILAR [Concomitant]
     Active Substance: BETAMETHASONE DIPROPIONATE\CALCIPOTRIENE HYDRATE
     Indication: PRODUCT USED FOR UNKNOWN INDICATION
     Dosage: UNK
     Route: 065
  2. LEVETIRACETAM. [Concomitant]
     Active Substance: LEVETIRACETAM
     Indication: PRODUCT USED FOR UNKNOWN INDICATION
     Dosage: 500 MG, QD (BY MOUTH)
     Route: 048
  3. DILANTIN [Concomitant]
     Active Substance: PHENYTOIN
     Dosage: 1 G, UNKNOWN
     Route: 065
  4. HYDRALAZINE [Concomitant]
     Active Substance: HYDRALAZINE HYDROCHLORIDE
     Indication: BLOOD PRESSURE SYSTOLIC
     Dosage: UNK UNK, PRN (5 ? 10MG BY MOUTH EVERY 4 HOURS)
     Route: 048
  5. METHOTREXATE. [Concomitant]
     Active Substance: METHOTREXATE
     Indication: PRODUCT USED FOR UNKNOWN INDICATION
     Dosage: UNK
     Route: 048
     Dates: start: 20200212
  6. CLOBETASOL [Concomitant]
     Active Substance: CLOBETASOL
     Indication: PRODUCT USED FOR UNKNOWN INDICATION
     Dosage: UNK
     Route: 065
  7. DILANTIN [Concomitant]
     Active Substance: PHENYTOIN
     Dosage: 500 MG, UNKNOWN
     Route: 065
  8. DULCOLAX NOS [Concomitant]
     Active Substance: BISACODYL OR DOCUSATE SODIUM
     Indication: PRODUCT USED FOR UNKNOWN INDICATION
     Dosage: 10 MG, QD PRN
     Route: 065
  9. DOVONEX [Concomitant]
     Active Substance: CALCIPOTRIENE
     Indication: PRODUCT USED FOR UNKNOWN INDICATION
     Dosage: UNK
     Route: 065
  10. CEFAZOLIN [Concomitant]
     Active Substance: CEFAZOLIN
     Indication: PRODUCT USED FOR UNKNOWN INDICATION
     Dosage: 2 G, (IV EVERY 8 HOURS X 3 DOSES)
     Route: 042
  11. COSENTYX [Suspect]
     Active Substance: SECUKINUMAB
     Indication: PSORIASIS
     Dosage: UNK
     Route: 065
     Dates: start: 202007
  12. TRAMADOL. [Concomitant]
     Active Substance: TRAMADOL
     Indication: PRODUCT USED FOR UNKNOWN INDICATION
     Dosage: 2 DF, PRN (EVERY 6 HOURS)
     Route: 048
  13. LACTULOSE. [Concomitant]
     Active Substance: LACTULOSE
     Indication: PRODUCT USED FOR UNKNOWN INDICATION
     Dosage: UNK UNK, PRN, (UNK, (15 ?30 MG) BY MOUTH TWICE DAILY
     Route: 048
  14. ANCEF [Concomitant]
     Active Substance: CEFAZOLIN SODIUM
     Indication: PRODUCT USED FOR UNKNOWN INDICATION
     Dosage: UNK
     Route: 065
  15. COSENTYX [Suspect]
     Active Substance: SECUKINUMAB
     Dosage: 300 MG, QMO
     Route: 058
     Dates: start: 20200827, end: 202102
  16. DILANTIN [Concomitant]
     Active Substance: PHENYTOIN
     Indication: PRODUCT USED FOR UNKNOWN INDICATION
     Dosage: 100 MG, TID (BY MOUTH)
     Route: 048
  17. TYLENOL [Concomitant]
     Active Substance: ACETAMINOPHEN
     Indication: PRODUCT USED FOR UNKNOWN INDICATION
     Dosage: UNK, PRN (500?1000 MG BY MOUTH EVERY 4 HOURS)
     Route: 048
  18. ZOFRAN [Concomitant]
     Active Substance: ONDANSETRON HYDROCHLORIDE
     Indication: PRODUCT USED FOR UNKNOWN INDICATION
     Dosage: UNK
     Route: 065
  19. SENOKOT [Concomitant]
     Active Substance: SENNOSIDES
     Indication: PRODUCT USED FOR UNKNOWN INDICATION
     Dosage: 17.2 MG, QD, (BY MOUTH AT BEDTIME)
     Route: 048
  20. HYDROMORPHONE [Concomitant]
     Active Substance: HYDROMORPHONE
     Indication: PRODUCT USED FOR UNKNOWN INDICATION
     Dosage: UNK UNK, PRN, (1 ? 2 MG) BY MOUTH EVERY 2 HRS
     Route: 048
  21. COSENTYX [Suspect]
     Active Substance: SECUKINUMAB
     Dosage: UNK
     Route: 065
     Dates: start: 20210225
  22. DECADRON [Concomitant]
     Active Substance: DEXAMETHASONE
     Indication: PRODUCT USED FOR UNKNOWN INDICATION
     Dosage: UNK
     Route: 065

REACTIONS (33)
  - Brain neoplasm [Unknown]
  - Glioblastoma multiforme [Unknown]
  - Dysaesthesia [Unknown]
  - Confusional state [Unknown]
  - Abdominal pain lower [Unknown]
  - Product dose omission issue [Unknown]
  - Seizure [Unknown]
  - Cholesteatoma [Unknown]
  - Tympanic membrane disorder [Unknown]
  - Sinus disorder [Unknown]
  - Loss of consciousness [Unknown]
  - Reading disorder [Recovering/Resolving]
  - Metastases to central nervous system [Unknown]
  - Muscle rigidity [Unknown]
  - Auditory disorder [Unknown]
  - Hypoaesthesia [Unknown]
  - Syncope [Recovered/Resolved]
  - Headache [Unknown]
  - Rhinorrhoea [Unknown]
  - Aphasia [Unknown]
  - Restlessness [Unknown]
  - Paraesthesia [Unknown]
  - Sinus headache [Unknown]
  - Memory impairment [Recovering/Resolving]
  - Temporomandibular joint syndrome [Unknown]
  - Thirst [Unknown]
  - Ear disorder [Unknown]
  - Excessive cerumen production [Unknown]
  - Central nervous system lesion [Unknown]
  - Dysgraphia [Recovering/Resolving]
  - Groin pain [Unknown]
  - Ear discomfort [Unknown]
  - Nasal dryness [Unknown]

NARRATIVE: CASE EVENT DATE: 202009
